FAERS Safety Report 8602099 (Version 4)
Quarter: 2013Q1

REPORT INFORMATION
  Report Type: Spontaneous
  Country: FR (occurrence: FR)
  Receive Date: 20120607
  Receipt Date: 20130125
  Transmission Date: 20140127
  Serious: Yes (Disabling, Other)
  Sender: FDA-Public Use
  Company Number: FR-BRISTOL-MYERS SQUIBB COMPANY-16636326

PATIENT
  Age: 33 Year
  Sex: Male
  Weight: 72 kg

DRUGS (1)
  1. BARACLUDE [Suspect]
     Indication: HEPATITIS B
     Route: 048
     Dates: start: 201009, end: 201111

REACTIONS (2)
  - Myopathy [Not Recovered/Not Resolved]
  - Neuropathy peripheral [Unknown]
